FAERS Safety Report 18435494 (Version 1)
Quarter: 2020Q4

REPORT INFORMATION
  Report Type: Spontaneous
  Country: DK (occurrence: DK)
  Receive Date: 20201028
  Receipt Date: 20201028
  Transmission Date: 20210114
  Serious: Yes (Disabling)
  Sender: FDA-Public Use
  Company Number: None

PATIENT
  Age: 43 Year
  Sex: Male
  Weight: 90 kg

DRUGS (1)
  1. OCREVUS [Suspect]
     Active Substance: OCRELIZUMAB
     Indication: MULTIPLE SCLEROSIS

REACTIONS (5)
  - B-lymphocyte count abnormal [None]
  - Intentional product use issue [None]
  - Product complaint [None]
  - Multiple sclerosis relapse [None]
  - Blood immunoglobulin G decreased [None]

NARRATIVE: CASE EVENT DATE: 20201026
